FAERS Safety Report 21733643 (Version 1)
Quarter: 2022Q4

REPORT INFORMATION
  Report Type: Report from Study
  Country: FR (occurrence: FR)
  Receive Date: 20221215
  Receipt Date: 20221215
  Transmission Date: 20230113
  Serious: Yes (Hospitalization)
  Sender: FDA-Public Use
  Company Number: FR-002147023-NVSC2022FR286967

PATIENT
  Weight: 74 kg

DRUGS (3)
  1. PLUVICTO [Suspect]
     Active Substance: LUTETIUM LU-177 VIPIVOTIDE TETRAXETAN
     Indication: Prostate cancer
     Dosage: 7513 MBQ (ONCE, 1ST CYCLE)
     Route: 065
     Dates: start: 20220726, end: 20220726
  2. PLUVICTO [Suspect]
     Active Substance: LUTETIUM LU-177 VIPIVOTIDE TETRAXETAN
     Dosage: 6059 MBQ (ONCE, 2ND CYCLE)
     Route: 065
     Dates: start: 20220908, end: 20220908
  3. PLUVICTO [Suspect]
     Active Substance: LUTETIUM LU-177 VIPIVOTIDE TETRAXETAN
     Dosage: 7400 MBQ (ONCE, 3RD CYCLE)
     Route: 065
     Dates: start: 20221020, end: 20221020

REACTIONS (2)
  - General physical health deterioration [Unknown]
  - C-reactive protein increased [Unknown]
